FAERS Safety Report 4523649-4 (Version None)
Quarter: 2004Q4

REPORT INFORMATION
  Report Type: 
  Country: None (occurrence: None)
  Receive Date: 20041210
  Receipt Date: 20041210
  Transmission Date: 20050328
  Serious: Yes (Life-Threatening, Hospitalization)
  Sender: FDA-Public Use
  Company Number: None

PATIENT
  Age: 79 Year
  Sex: Male
  Weight: 79.3795 kg

DRUGS (10)
  1. PLAVIX [Suspect]
     Indication: CAROTID ARTERY OCCLUSION
     Dosage: 1 TAB DAILY BY MOUTH
     Dates: start: 20040311, end: 20041111
  2. PLAVIX [Suspect]
     Indication: CORONARY ARTERY OCCLUSION
     Dosage: 1 TAB DAILY BY MOUTH
     Dates: start: 20040311, end: 20041111
  3. GEMFIBROZIL [Concomitant]
  4. ALTRACE [Concomitant]
  5. TROPROL XL [Concomitant]
  6. PRAVACHOL [Concomitant]
  7. SYNTHROID [Concomitant]
  8. PRILOSEC [Concomitant]
  9. NITRO PATCH [Concomitant]
  10. ASPIRIN [Concomitant]

REACTIONS (1)
  - COLONIC HAEMORRHAGE [None]
